FAERS Safety Report 8382980-5 (Version None)
Quarter: 2012Q2

REPORT INFORMATION
  Report Type: 
  Country: None (occurrence: None)
  Receive Date: 20120524
  Receipt Date: 20120508
  Transmission Date: 20120825
  Serious: Yes (Other)
  Sender: FDA-Public Use
  Company Number: CA-JNJFOC-20120508873

PATIENT
  Age: 50 Year
  Sex: Female

DRUGS (1)
  1. FENTANYL-100 [Suspect]
     Indication: PRODUCT USED FOR UNKNOWN INDICATION
     Route: 055

REACTIONS (4)
  - ANAEMIA [None]
  - LEUKOCYTOSIS [None]
  - INTENTIONAL DRUG MISUSE [None]
  - ALVEOLAR PROTEINOSIS [None]
